FAERS Safety Report 7243172-6 (Version None)
Quarter: 2011Q1

REPORT INFORMATION
  Report Type: 
  Country: None (occurrence: None)
  Receive Date: 20110118
  Receipt Date: 20110101
  Transmission Date: 20110831
  Serious: Yes (Hospitalization, Other)
  Sender: FDA-Public Use
  Company Number: DSU-2011-00169

PATIENT
  Sex: Male
  Weight: 102.9665 kg

DRUGS (4)
  1. WELCHOL [Suspect]
     Indication: BLOOD CHOLESTEROL INCREASED
     Dosage: PER ORAL
     Route: 048
  2. SIMVASTATIN [Suspect]
     Indication: BLOOD CHOLESTEROL INCREASED
  3. NIACIN [Suspect]
     Indication: BLOOD CHOLESTEROL INCREASED
  4. VERAPAMIL [Concomitant]

REACTIONS (6)
  - GENERALISED ERYTHEMA [None]
  - BURNING SENSATION [None]
  - MYALGIA [None]
  - UNEVALUABLE EVENT [None]
  - ATRIAL FIBRILLATION [None]
  - BLOOD CHOLESTEROL INCREASED [None]
